FAERS Safety Report 18330878 (Version 1)
Quarter: 2020Q3

REPORT INFORMATION
  Report Type: Spontaneous
  Country: US (occurrence: US)
  Receive Date: 20200930
  Receipt Date: 20200930
  Transmission Date: 20201103
  Serious: Yes (Other)
  Sender: FDA-Public Use
  Company Number: US-PFIZER INC-2019126077

PATIENT
  Sex: Male

DRUGS (1)
  1. ACCUPRIL [Suspect]
     Active Substance: QUINAPRIL HYDROCHLORIDE
     Dosage: 60 MG, DAILY (TAKE TWO 20MG TABLETS IN THE MORNING THEN ONE 20 MG TABLET AT NIGHT)

REACTIONS (1)
  - Blindness [Unknown]
